FAERS Safety Report 16408710 (Version 4)
Quarter: 2020Q4

REPORT INFORMATION
  Report Type: Report from Study
  Country: US (occurrence: US)
  Receive Date: 20190610
  Receipt Date: 20201207
  Transmission Date: 20210113
  Serious: Yes (Other)
  Sender: FDA-Public Use
  Company Number: PHEH2019US023673

PATIENT
  Sex: Female

DRUGS (1)
  1. AZOPT [Suspect]
     Active Substance: BRINZOLAMIDE
     Indication: PRODUCT USED FOR UNKNOWN INDICATION
     Route: 065

REACTIONS (7)
  - Glaucoma [Unknown]
  - Macular degeneration [Unknown]
  - Intraocular pressure test abnormal [Unknown]
  - Blindness unilateral [Unknown]
  - Drug hypersensitivity [Unknown]
  - Age-related macular degeneration [Unknown]
  - Visual impairment [Unknown]
